FAERS Safety Report 8314766-1 (Version None)
Quarter: 2012Q2

REPORT INFORMATION
  Report Type: 
  Country: None (occurrence: None)
  Receive Date: 20120426
  Receipt Date: 20120420
  Transmission Date: 20120825
  Serious: Yes (Other)
  Sender: FDA-Public Use
  Company Number: PHHY2012BR034567

PATIENT
  Sex: Female

DRUGS (3)
  1. CITALOPRAM HYDROBROMIDE [Concomitant]
     Indication: ANXIETY
     Dosage: 20 MG, QD
  2. BUSPIRONE HCL [Concomitant]
     Indication: ANXIETY
     Dosage: 10 MG, QD
  3. EXFORGE [Suspect]
     Indication: HYPERTENSION
     Dosage: 1 DF (80/5MG) DAILY
     Route: 048

REACTIONS (3)
  - FALL [None]
  - UPPER LIMB FRACTURE [None]
  - HYPERTENSION [None]
